APPROVED DRUG PRODUCT: NAPROSYN
Active Ingredient: NAPROXEN
Strength: 375MG
Dosage Form/Route: TABLET;ORAL
Application: N017581 | Product #003
Applicant: ATNAHS PHARMA US LTD
Approved: Approved Prior to Jan 1, 1982 | RLD: Yes | RS: No | Type: DISCN